FAERS Safety Report 23560672 (Version 2)
Quarter: 2024Q1

REPORT INFORMATION
  Report Type: Report from Study
  Country: CA (occurrence: CA)
  Receive Date: 20240223
  Receipt Date: 20240229
  Transmission Date: 20240410
  Serious: Yes (Other)
  Sender: FDA-Public Use
  Company Number: CA-Eisai-EC-2024-160206

PATIENT
  Age: 55 Year
  Sex: Female
  Weight: 90.1 kg

DRUGS (8)
  1. LENVIMA [Suspect]
     Active Substance: LENVATINIB
     Indication: Endometrial cancer
     Dosage: MISSED DOSES
     Route: 048
     Dates: start: 20230405, end: 202304
  2. LENVIMA [Suspect]
     Active Substance: LENVATINIB
     Dosage: MISSED DOSES ON JUNE 9 AND 10
     Route: 048
     Dates: start: 2023, end: 20231002
  3. KEYTRUDA [Suspect]
     Active Substance: PEMBROLIZUMAB
     Indication: Endometrial cancer
     Route: 041
     Dates: start: 20230405
  4. KEYTRUDA [Suspect]
     Active Substance: PEMBROLIZUMAB
     Route: 041
     Dates: start: 2023, end: 20230809
  5. DICLOFENAC [Concomitant]
     Active Substance: DICLOFENAC
  6. INDOMETHACIN [Concomitant]
     Active Substance: INDOMETHACIN
  7. TYLENOL [Concomitant]
     Active Substance: ACETAMINOPHEN
  8. VITAMINS [Concomitant]
     Active Substance: VITAMINS

REACTIONS (2)
  - Urogenital fistula [Unknown]
  - Malignant neoplasm progression [Unknown]

NARRATIVE: CASE EVENT DATE: 20230101
